FAERS Safety Report 4468396-2 (Version None)
Quarter: 2004Q4

REPORT INFORMATION
  Report Type: 
  Country: None (occurrence: None)
  Receive Date: 20041006
  Receipt Date: 20041001
  Transmission Date: 20050328
  Serious: Yes (Other)
  Sender: FDA-Public Use
  Company Number: 002839

PATIENT
  Age: 68 Year
  Sex: Female

DRUGS (5)
  1. MEDROXYPROGESTERONE ACETATE [Suspect]
     Dates: start: 19790101, end: 19970801
  2. PROVERA [Suspect]
     Dates: start: 19790101, end: 19970801
  3. PREMARIN [Suspect]
     Dates: start: 19790101, end: 19970801
  4. PREMARIN [Suspect]
     Dates: start: 19990601, end: 20010601
  5. MEDROXYPROGESTERONE ACETATE [Suspect]
     Dates: start: 19960501, end: 20010601

REACTIONS (1)
  - ENDOMETRIAL CANCER [None]
